FAERS Safety Report 19388540 (Version 1)
Quarter: 2021Q2

REPORT INFORMATION
  Report Type: Spontaneous
  Country: US (occurrence: US)
  Receive Date: 20210607
  Receipt Date: 20210607
  Transmission Date: 20210717
  Serious: Yes (Hospitalization)
  Sender: FDA-Public Use
  Company Number: None

PATIENT
  Age: 61 Year
  Sex: Female

DRUGS (9)
  1. FOLIC ACID. [Concomitant]
     Active Substance: FOLIC ACID
  2. MULTIVITAMIN [Concomitant]
     Active Substance: VITAMINS
  3. PROLENSA [Concomitant]
     Active Substance: BROMFENAC SODIUM
  4. BRIMONIDINE [Concomitant]
     Active Substance: BRIMONIDINE TARTRATE
  5. HUMIRA [Suspect]
     Active Substance: ADALIMUMAB
     Indication: PSORIATIC ARTHROPATHY
     Dosage: ?          OTHER FREQUENCY:EVERY 14 DAYS;?
     Route: 058
     Dates: start: 20171006
  6. CELEBREX [Concomitant]
     Active Substance: CELECOXIB
  7. METHOTREXATE. [Concomitant]
     Active Substance: METHOTREXATE
  8. PREDNISOLONE. [Concomitant]
     Active Substance: PREDNISOLONE
  9. ATROPINE. [Concomitant]
     Active Substance: ATROPINE

REACTIONS (2)
  - Eye operation [None]
  - Therapy interrupted [None]

NARRATIVE: CASE EVENT DATE: 20210604
